FAERS Safety Report 6605018-6 (Version None)
Quarter: 2010Q1

REPORT INFORMATION
  Report Type: 
  Country: None (occurrence: None)
  Receive Date: 20100226
  Receipt Date: 20100219
  Transmission Date: 20100710
  Serious: Yes (Other)
  Sender: FDA-Public Use
  Company Number: IT-BRISTOL-MYERS SQUIBB COMPANY-14986301

PATIENT
  Age: 83 Year
  Sex: Female

DRUGS (7)
  1. COUMADIN [Suspect]
     Indication: ATRIAL FIBRILLATION
     Dosage: THERAPY INTERRUPTED ON 09NOV2009 AND RESTARTED.
     Route: 048
     Dates: start: 20090116
  2. VECLAM [Suspect]
     Indication: BRONCHOPNEUMOPATHY
     Dosage: TABLET.
     Route: 048
     Dates: start: 20091105, end: 20091110
  3. MEDROL [Suspect]
     Indication: BRONCHOPNEUMOPATHY
     Dosage: TABLET.
     Route: 048
     Dates: start: 20091106, end: 20091109
  4. CORDARONE [Concomitant]
     Dosage: TABLETS.
     Route: 048
  5. LASIX [Concomitant]
     Dosage: LASIX 25 MG TABLET.
     Route: 048
  6. CARVEDILOL [Concomitant]
     Dosage: CARVEDILOL EG 6.25 MG TABLET.
     Route: 048
  7. SERETIDE [Concomitant]

REACTIONS (2)
  - BRONCHOPNEUMOPATHY [None]
  - INTERNATIONAL NORMALISED RATIO INCREASED [None]
